FAERS Safety Report 8470588-2 (Version None)
Quarter: 2012Q2

REPORT INFORMATION
  Report Type: 
  Country: None (occurrence: None)
  Receive Date: 20120627
  Receipt Date: 20120621
  Transmission Date: 20120825
  Serious: Yes (Hospitalization, Other)
  Sender: FDA-Public Use
  Company Number: PHHY2012BE049137

PATIENT
  Sex: Female

DRUGS (13)
  1. ZOLEDRONOC ACID [Suspect]
     Indication: OSTEOPOROSIS
     Dosage: 5 MG, UNK
     Route: 042
     Dates: start: 20090219
  2. ZOLEDRONOC ACID [Suspect]
     Dosage: 5 MG, UNK
     Route: 042
     Dates: start: 20120411
  3. CRESTOR [Concomitant]
     Indication: HYPERCHOLESTEROLAEMIA
     Dosage: 10 MG, UNK
  4. BROMAZEPAM [Concomitant]
     Dosage: 6 MG, UNK
  5. DUPHALAC [Concomitant]
     Indication: CONSTIPATION
  6. BENZODIAZEPINES [Concomitant]
  7. BELSAR [Concomitant]
     Indication: HYPERTENSION
     Dosage: 20 MG, UNK
  8. INDAPAMIDE [Concomitant]
     Indication: HYPERTENSION
     Dosage: 2.5 MG, UNK
  9. ZOLEDRONOC ACID [Suspect]
     Dosage: 5 MG, UNK
     Route: 042
     Dates: start: 20100113
  10. ARANESP [Concomitant]
     Dosage: 60 UG, PER MONTH
  11. ZOLEDRONOC ACID [Suspect]
     Dosage: 5 MG, UNK
     Route: 042
     Dates: start: 20110406
  12. ARANESP [Concomitant]
     Indication: NEPHROGENIC ANAEMIA
     Dosage: 20 UG, UNK
     Dates: start: 20120521
  13. TRAZODONE HCL [Concomitant]
     Indication: DEPRESSION
     Dosage: 100 MG, UNK

REACTIONS (27)
  - RENAL IMPAIRMENT [None]
  - HYPERVENTILATION [None]
  - NEPHROGENIC ANAEMIA [None]
  - ABDOMINAL PAIN [None]
  - RENAL FAILURE ACUTE [None]
  - DYSPNOEA EXERTIONAL [None]
  - ESCHERICHIA URINARY TRACT INFECTION [None]
  - MALAISE [None]
  - FEELING ABNORMAL [None]
  - HYPERCALCAEMIA [None]
  - OEDEMA [None]
  - NEPHROANGIOSCLEROSIS [None]
  - RENAL FAILURE [None]
  - OEDEMA PERIPHERAL [None]
  - RENAL FAILURE CHRONIC [None]
  - NAUSEA [None]
  - TUBULOINTERSTITIAL NEPHRITIS [None]
  - RENAL DISORDER [None]
  - MICROALBUMINURIA [None]
  - CHILLS [None]
  - ANAEMIA [None]
  - BACK PAIN [None]
  - VOMITING [None]
  - CHEST PAIN [None]
  - ARTHRALGIA [None]
  - PROTEINURIA [None]
  - FATIGUE [None]
